FAERS Safety Report 6089302-3 (Version None)
Quarter: 2009Q1

REPORT INFORMATION
  Report Type: 
  Country: None (occurrence: None)
  Receive Date: 20090224
  Receipt Date: 20090217
  Transmission Date: 20090719
  Serious: Yes (Hospitalization)
  Sender: FDA-Public Use
  Company Number: US-ELI_LILLY_AND_COMPANY-US200902004457

PATIENT
  Sex: Female
  Weight: 72.562 kg

DRUGS (1)
  1. BYETTA [Suspect]
     Indication: BLOOD GLUCOSE
     Dosage: 10 UG, 2/D
     Route: 058
     Dates: start: 20080926, end: 20081007

REACTIONS (8)
  - CHEST PAIN [None]
  - CHILLS [None]
  - DYSPEPSIA [None]
  - HYPERHIDROSIS [None]
  - INCOHERENT [None]
  - LOSS OF CONSCIOUSNESS [None]
  - PAIN IN EXTREMITY [None]
  - VOMITING [None]
